FAERS Safety Report 6786251-X (Version None)
Quarter: 2010Q2

REPORT INFORMATION
  Report Type: 
  Country: None (occurrence: None)
  Receive Date: 20100623
  Receipt Date: 20100616
  Transmission Date: 20101027
  Serious: Yes (Hospitalization)
  Sender: FDA-Public Use
  Company Number: IT-ROCHE-707338

PATIENT
  Sex: Female

DRUGS (2)
  1. AVASTIN [Suspect]
     Dosage: FREQUENCY: CYCLE.
     Route: 042
     Dates: start: 20090424, end: 20090729
  2. PACLITAXEL [Concomitant]
     Dosage: DRUG REPORTED AS PACLITAXEL/ PACLITAXEL EBEWE
     Route: 042
     Dates: start: 20090424, end: 20090729

REACTIONS (3)
  - DYSPNOEA [None]
  - PULMONARY OEDEMA [None]
  - SUPRAVENTRICULAR TACHYCARDIA [None]
